FAERS Safety Report 18432901 (Version 3)
Quarter: 2020Q4

REPORT INFORMATION
  Report Type: Spontaneous
  Country: US (occurrence: US)
  Receive Date: 20201027
  Receipt Date: 20201125
  Transmission Date: 20210114
  Serious: Yes (Other)
  Sender: FDA-Public Use
  Company Number: US-009507513-2010USA009286

PATIENT
  Age: 35 Year
  Sex: Female
  Weight: 151 kg

DRUGS (1)
  1. NEXPLANON [Suspect]
     Active Substance: ETONOGESTREL
     Dosage: 1 IMPLANT, NON-DOMINANT LEFT UPPER ARM
     Route: 059
     Dates: start: 2019, end: 20201118

REACTIONS (7)
  - Device issue [Recovered/Resolved]
  - Device dislocation [Recovered/Resolved]
  - Device placement issue [Unknown]
  - Device deployment issue [Recovered/Resolved]
  - Menstruation irregular [Unknown]
  - Implant site fibrosis [Unknown]
  - Complication of device removal [Recovered/Resolved]

NARRATIVE: CASE EVENT DATE: 2019
